FAERS Safety Report 12728755 (Version 1)
Quarter: 2016Q3

REPORT INFORMATION
  Report Type: Spontaneous
  Country: US (occurrence: US)
  Receive Date: 20160909
  Receipt Date: 20160909
  Transmission Date: 20161109
  Serious: No
  Sender: FDA-Public Use
  Company Number: US-TEVA-677863USA

PATIENT
  Age: 60 Year
  Sex: Male

DRUGS (4)
  1. NUVIGIL [Suspect]
     Active Substance: ARMODAFINIL
     Indication: NARCOLEPSY
  2. DEXTROAMPHETAMINE. [Concomitant]
     Active Substance: DEXTROAMPHETAMINE
     Indication: POOR QUALITY SLEEP
  3. HYDROCODONE [Concomitant]
     Active Substance: HYDROCODONE
  4. NUVIGIL [Suspect]
     Active Substance: ARMODAFINIL
     Indication: HYPERSOMNIA
     Dosage: 750 MILLIGRAM DAILY;
     Route: 065

REACTIONS (3)
  - Incorrect dose administered [Unknown]
  - Hypersomnia [Unknown]
  - Haemoglobin abnormal [Unknown]

NARRATIVE: CASE EVENT DATE: 2016
